FAERS Safety Report 17551453 (Version 7)
Quarter: 2025Q4

REPORT INFORMATION
  Report Type: Spontaneous
  Country: US (occurrence: US)
  Receive Date: 20200317
  Receipt Date: 20251204
  Transmission Date: 20260118
  Serious: Yes (Hospitalization, Other)
  Sender: PFIZER
  Company Number: US-PFIZER INC-2020114857

PATIENT
  Age: 78 Year
  Sex: Female
  Weight: 68.04 kg

DRUGS (2)
  1. XELJANZ XR [Suspect]
     Active Substance: TOFACITINIB CITRATE
     Dosage: 11 MG
  2. XELJANZ XR [Suspect]
     Active Substance: TOFACITINIB CITRATE
     Dosage: 11 MG

REACTIONS (8)
  - Diverticulitis [Unknown]
  - Dyspnoea exertional [Not Recovered/Not Resolved]
  - Fall [Unknown]
  - Craniofacial fracture [Unknown]
  - Tooth fracture [Unknown]
  - Drug ineffective [Unknown]
  - Pain [Unknown]
  - Hypoacusis [Unknown]

NARRATIVE: CASE EVENT DATE: 20220606
